FAERS Safety Report 9055534 (Version 2)
Quarter: 2013Q2

REPORT INFORMATION
  Report Type: Report from Study
  Country: JP (occurrence: JP)
  Receive Date: 20130206
  Receipt Date: 20130423
  Transmission Date: 20140414
  Serious: Yes (Death, Hospitalization)
  Sender: FDA-Public Use
  Company Number: JP-GLAXOSMITHKLINE-B0864210A

PATIENT
  Age: 42 Year
  Sex: Male
  Weight: 63 kg

DRUGS (2)
  1. VOTRIENT [Suspect]
     Indication: LIPOSARCOMA
     Dosage: 800MG PER DAY
     Route: 048
     Dates: start: 20121214, end: 20130114
  2. VOTRIENT [Suspect]
     Indication: LIPOSARCOMA
     Dosage: 800MG PER DAY
     Route: 048
     Dates: start: 20130116, end: 20130121

REACTIONS (10)
  - Death [Fatal]
  - Ileus [Recovered/Resolved]
  - Sepsis [Recovered/Resolved]
  - Postrenal failure [Not Recovered/Not Resolved]
  - Ileus [Not Recovered/Not Resolved]
  - Erythema [Recovered/Resolved]
  - Illusion [Recovered/Resolved]
  - Aspartate aminotransferase increased [Recovered/Resolved]
  - Alanine aminotransferase increased [Recovered/Resolved]
  - Oedema peripheral [Recovered/Resolved]
